FAERS Safety Report 5195066-8 (Version None)
Quarter: 2006Q4

REPORT INFORMATION
  Report Type: 
  Country: None (occurrence: None)
  Receive Date: 20061229
  Receipt Date: 20061220
  Transmission Date: 20070319
  Serious: Yes (Other)
  Sender: FDA-Public Use
  Company Number: US-JNJFOC-20061205932

PATIENT
  Age: 17 Year
  Sex: Male

DRUGS (3)
  1. EXTRA STRENGTH TYLENOL [Suspect]
  2. EXTRA STRENGTH TYLENOL [Suspect]
     Indication: PAIN
  3. LORTAB [Concomitant]
     Dosage: ONE ORALLY, TWICE A DAY AS NECESSARY

REACTIONS (1)
  - OESOPHAGEAL OBSTRUCTION [None]
